FAERS Safety Report 9730589 (Version 3)
Quarter: 2014Q2

REPORT INFORMATION
  Report Type: Report from Study
  Country: GB (occurrence: GB)
  Receive Date: 20131205
  Receipt Date: 20140404
  Transmission Date: 20141212
  Serious: Yes (Life-Threatening, Other)
  Sender: FDA-Public Use
  Company Number: GB-AMGEN-GBRCT2013085233

PATIENT
  Age: 74 Year
  Sex: Male
  Weight: 66 kg

DRUGS (2)
  1. ETANERCEPT [Suspect]
     Indication: RHEUMATOID ARTHRITIS
     Dosage: 25 MG, 2 TIMES/WK
     Route: 065
     Dates: start: 20060710
  2. METHOTREXATE [Concomitant]
     Dosage: UNK

REACTIONS (2)
  - Prostate cancer [Not Recovered/Not Resolved]
  - Bladder transitional cell carcinoma [Not Recovered/Not Resolved]
